FAERS Safety Report 15516587 (Version 1)
Quarter: 2018Q4

REPORT INFORMATION
  Report Type: Spontaneous
  Country: JP (occurrence: JP)
  Receive Date: 20181017
  Receipt Date: 20181017
  Transmission Date: 20190205
  Serious: Yes (Other)
  Sender: FDA-Public Use
  Company Number: JP-ALKEM LABORATORIES LIMITED-JP-ALKEM-2018-06468

PATIENT
  Age: 60 Year
  Sex: Female
  Weight: 67 kg

DRUGS (2)
  1. LINEZOLID. [Suspect]
     Active Substance: LINEZOLID
     Indication: STAPHYLOCOCCAL INFECTION
     Dosage: 600 MG, BID, INTRAVENOUS DRIP INFUSION FOR 60?90 MIN AT ABOUT 12-H INTERVALS
     Route: 042
  2. LINEZOLID (PFIZER) [Suspect]
     Active Substance: LINEZOLID
     Indication: STAPHYLOCOCCAL INFECTION
     Dosage: 600 MG, BID, INTRAVENOUS DRIP INFUSION FOR 60?90 MIN AT ABOUT 12-H INTERVALS
     Route: 042

REACTIONS (2)
  - Anaemia [Recovered/Resolved]
  - Thrombocytopenia [Recovered/Resolved]
